FAERS Safety Report 7139241-1 (Version None)
Quarter: 2010Q4

REPORT INFORMATION
  Report Type: 
  Country: None (occurrence: None)
  Receive Date: 20101206
  Receipt Date: 20101122
  Transmission Date: 20110411
  Serious: Yes (Hospitalization)
  Sender: FDA-Public Use
  Company Number: US-KINGPHARMUSA00001-K201001367

PATIENT
  Sex: Female
  Weight: 97.116 kg

DRUGS (6)
  1. EMBEDA [Suspect]
     Dosage: 100 MG, BID
     Route: 048
     Dates: start: 20101026
  2. LOTREL [Concomitant]
     Dosage: 10 MG, UNK
  3. ZOCOR [Concomitant]
     Dosage: 40 MG, QD
  4. AMBIEN [Concomitant]
     Dosage: 10 MG, UNK
  5. PROTONIX [Concomitant]
     Dosage: 40 MG, UNK
  6. HYDROCODONE [Concomitant]
     Dosage: 100/625 MG

REACTIONS (4)
  - DEHYDRATION [None]
  - DYSPEPSIA [None]
  - HEPATITIS ACUTE [None]
  - VOMITING [None]
